FAERS Safety Report 7396739-9 (Version None)
Quarter: 2011Q1

REPORT INFORMATION
  Report Type: 
  Country: None (occurrence: None)
  Receive Date: 20110328
  Receipt Date: 20110315
  Transmission Date: 20110831
  Serious: Yes (Hospitalization)
  Sender: FDA-Public Use
  Company Number: 1000019422

PATIENT
  Sex: Female

DRUGS (2)
  1. BENZODIAZEPINES (BENZODIAZEPINES) (BENZODIAZEPINES) [Concomitant]
  2. MEMANTINE [Suspect]
     Indication: DEMENTIA

REACTIONS (3)
  - HYPOTENSION [None]
  - DIZZINESS [None]
  - CARDIOVASCULAR DISORDER [None]
